FAERS Safety Report 11585652 (Version 2)
Quarter: 2015Q4

REPORT INFORMATION
  Report Type: Spontaneous
  Country: US (occurrence: US)
  Receive Date: 20151001
  Receipt Date: 20151110
  Transmission Date: 20160304
  Serious: Yes (Hospitalization, Disabling)
  Sender: FDA-Public Use
  Company Number: US-ENDO PHARMACEUTICALS INC.-2015-002519

PATIENT
  Age: 51 Year
  Sex: Male
  Weight: 122.58 kg

DRUGS (4)
  1. TESTIM [Suspect]
     Active Substance: TESTOSTERONE
     Indication: ANDROGEN REPLACEMENT THERAPY
     Dosage: PER MEDICAL RECORDS ^15 MG, ONE PACKET PER DAY^
     Route: 062
     Dates: start: 201106, end: 201403
  2. ANDROGEL [Suspect]
     Active Substance: TESTOSTERONE
     Route: 065
     Dates: start: 200901, end: 200903
  3. ANDROGEL [Suspect]
     Active Substance: TESTOSTERONE
     Indication: ANDROGEN REPLACEMENT THERAPY
     Route: 065
     Dates: start: 200611
  4. TESTOSTERONE CYPIONATE. [Suspect]
     Active Substance: TESTOSTERONE CYPIONATE
     Indication: ANDROGEN REPLACEMENT THERAPY
     Route: 065
     Dates: start: 200709, end: 201009

REACTIONS (5)
  - Weight increased [Unknown]
  - Pericardial effusion [Unknown]
  - Deep vein thrombosis [Not Recovered/Not Resolved]
  - Pulmonary embolism [Not Recovered/Not Resolved]
  - Cardiac tamponade [Unknown]

NARRATIVE: CASE EVENT DATE: 20130501
